FAERS Safety Report 6943190-9 (Version None)
Quarter: 2010Q3

REPORT INFORMATION
  Report Type: 
  Country: None (occurrence: None)
  Receive Date: 20100826
  Receipt Date: 20100819
  Transmission Date: 20110219
  Serious: Yes (Hospitalization, Other)
  Sender: FDA-Public Use
  Company Number: US-PFIZER INC-2009279939

PATIENT
  Sex: Male
  Weight: 10 kg

DRUGS (2)
  1. DILANTIN-125 [Suspect]
     Indication: CONVULSION
     Dosage: UNK
     Route: 048
     Dates: start: 19990903, end: 19991108
  2. PHENOBARBITAL [Concomitant]
     Indication: CONVULSION
     Dosage: UNK
     Dates: start: 19991115, end: 19991129

REACTIONS (1)
  - STEVENS-JOHNSON SYNDROME [None]
